FAERS Safety Report 10087269 (Version 1)
Quarter: 2014Q2

REPORT INFORMATION
  Report Type: Spontaneous
  Country: US (occurrence: US)
  Receive Date: 20140418
  Receipt Date: 20140418
  Transmission Date: 20141212
  Serious: Yes (Death)
  Sender: FDA-Public Use
  Company Number: US-GTC BIOTHERAPEUTICS, INC-GTC2014000003

PATIENT
  Age: 3 Year
  Sex: Male

DRUGS (9)
  1. ATRYN [Suspect]
     Dosage: 312 IU, SINGLE
     Route: 042
  2. ATRYN [Suspect]
     Dosage: 104 IU/KG, UNK
     Route: 042
  3. HEPARIN [Concomitant]
     Indication: ANTICOAGULANT THERAPY
     Dosage: 100 IU/KG, SINGLE
     Route: 042
  4. HEPARIN [Concomitant]
     Dosage: 20 IU/KG, PER HOUR
     Route: 042
  5. PLASMA-LYTE [Concomitant]
     Indication: EXTRACORPOREAL MEMBRANE OXYGENATION
     Dosage: 350  TO 425 ML, SINGLE
  6. RED BLOOD CELLS [Concomitant]
     Dosage: 300 -350 ML, SINGLE
  7. PLASMA, FRESH FROZEN [Concomitant]
     Dosage: 100 ML, SINGLE
  8. ALBUMIN [Concomitant]
     Dosage: 50 ML, SINGLE (25%)
  9. SODIUM BICARBONATE [Concomitant]
     Dosage: 10 MEQ, SINGLE

REACTIONS (3)
  - Cardiac failure [Fatal]
  - Haemorrhage [Unknown]
  - Off label use [Unknown]
